FAERS Safety Report 5687428-7 (Version None)
Quarter: 2008Q1

REPORT INFORMATION
  Report Type: 
  Country: None (occurrence: None)
  Receive Date: 20080328
  Receipt Date: 20070115
  Transmission Date: 20080703
  Serious: No
  Sender: FDA-Public Use
  Company Number: US-BAYER-US-2006-037043

PATIENT
  Age: 23 Year
  Sex: Female

DRUGS (2)
  1. MIRENA [Suspect]
     Indication: CONTRACEPTION
     Route: 015
     Dates: start: 20061001
  2. NAPROXEN [Concomitant]

REACTIONS (7)
  - ABDOMINAL PAIN [None]
  - ADNEXA UTERI PAIN [None]
  - BIOPSY CERVIX [None]
  - COITAL BLEEDING [None]
  - DYSPAREUNIA [None]
  - PAIN IN EXTREMITY [None]
  - VAGINAL HAEMORRHAGE [None]
